FAERS Safety Report 7274744-0 (Version None)
Quarter: 2011Q1

REPORT INFORMATION
  Report Type: 
  Country: None (occurrence: None)
  Receive Date: 20110204
  Receipt Date: 20110125
  Transmission Date: 20110831
  Serious: Yes (Hospitalization)
  Sender: FDA-Public Use
  Company Number: US-JNJFOC-20101102645

PATIENT
  Sex: Male
  Weight: 59.9 kg

DRUGS (6)
  1. TACROLIMUS [Suspect]
     Indication: CROHN'S DISEASE
  2. PREDNISONE [Suspect]
     Indication: CROHN'S DISEASE
  3. ANTIBIOTICS [Suspect]
     Indication: CROHN'S DISEASE
  4. RANITIDINE [Suspect]
     Indication: PRODUCT USED FOR UNKNOWN INDICATION
  5. CIMZIA [Concomitant]
  6. REMICADE [Suspect]
     Indication: CROHN'S DISEASE
     Route: 042

REACTIONS (1)
  - CROHN'S DISEASE [None]
